FAERS Safety Report 8911594 (Version 1)
Quarter: 2012Q4

REPORT INFORMATION
  Report Type: 
  Country: US (occurrence: US)
  Receive Date: 20121115
  Receipt Date: 20121115
  Transmission Date: 20130627
  Serious: Yes (Hospitalization, Other)
  Sender: FDA-Public Use
  Company Number: US-PFIZER INC-2012285491

PATIENT
  Age: 72 Year
  Sex: Male
  Weight: 94.79 kg

DRUGS (15)
  1. LIPITOR [Suspect]
     Indication: HIGH CHOLESTEROL
     Dosage: 20 mg, daily
     Route: 048
  2. ACCUPRIL [Suspect]
     Indication: HIGH CHOLESTEROL
     Dosage: 20 mg, daily
     Route: 048
  3. SOTALOL [Suspect]
     Indication: ATRIAL FIBRILLATION
     Dosage: 80 mg, 1x/day in the morning
     Dates: start: 201211, end: 201211
  4. SOTALOL [Suspect]
     Dosage: 40 mg, 1x/day in the evening
     Dates: start: 201211, end: 201211
  5. METFORMIN [Concomitant]
     Indication: DIABETES
     Dosage: 1000 mg, 2x/day
  6. FLUOXETINE [Concomitant]
     Indication: AFFECTIVE DISORDER
     Dosage: 20 mg, daily
  7. FLUOXETINE [Concomitant]
     Indication: ANXIETY
  8. FLUOXETINE [Concomitant]
     Indication: DEPRESSION
  9. VESICARE [Concomitant]
     Indication: URINARY INCONTINENCE
     Dosage: 10 mg, 2x/day
  10. PRILOSEC [Concomitant]
     Indication: ACID REFLUX (ESOPHAGEAL)
     Dosage: 20 mg, daily
  11. OXYCODONE/PARACETAMOL [Concomitant]
     Indication: PAIN
     Dosage: 10/325 mg, as needed
  12. TYLENOL EXTRA-STRENGTH [Concomitant]
     Indication: PAIN
     Dosage: UNK, as needed
  13. VITAMIN D [Concomitant]
     Dosage: UNK
  14. VITAMIN C [Concomitant]
     Dosage: UNK
  15. FOLIC ACID [Concomitant]
     Dosage: UNK

REACTIONS (3)
  - Atrial fibrillation [Unknown]
  - Coronary artery occlusion [Unknown]
  - Drug ineffective [Unknown]
